FAERS Safety Report 4586736-0 (Version None)
Quarter: 2005Q1

REPORT INFORMATION
  Report Type: 
  Country: None (occurrence: None)
  Receive Date: 20050218
  Receipt Date: 20040819
  Transmission Date: 20050727
  Serious: Yes (Other)
  Sender: FDA-Public Use
  Company Number: PHBS2004BR10914

PATIENT
  Age: 47 Year
  Sex: Female
  Weight: 58 kg

DRUGS (5)
  1. TEGRETOL [Suspect]
     Indication: EPILEPSY
     Dosage: 400 MG, BID
     Route: 048
     Dates: start: 20050101, end: 20050201
  2. DEPAKENE [Concomitant]
     Indication: EPILEPSY
     Dosage: 250 MG/D
     Route: 048
  3. GARDENAL [Concomitant]
     Indication: EPILEPSY
     Dosage: 100 MG, QHS
     Route: 048
  4. TRILEPTAL [Suspect]
     Indication: EPILEPSY
     Dosage: UNK, UNK
  5. TRILEPTAL [Suspect]
     Dosage: 300 MG, TID
     Route: 048
     Dates: start: 20020101, end: 20050101

REACTIONS (6)
  - ALOPECIA [None]
  - CHONDROPATHY [None]
  - DEAFNESS [None]
  - HYPERSENSITIVITY [None]
  - MUSCULOSKELETAL DISORDER [None]
  - TINNITUS [None]
